FAERS Safety Report 5143192-1 (Version None)
Quarter: 2006Q4

REPORT INFORMATION
  Report Type: 
  Country: None (occurrence: None)
  Receive Date: 20061103
  Receipt Date: 20061026
  Transmission Date: 20070319
  Serious: Yes (Death)
  Sender: FDA-Public Use
  Company Number: GB-PURDUE-DEU_2006_0002597

PATIENT
  Age: 71 Year
  Sex: Male

DRUGS (5)
  1. OXYCODON 10MG / NALOXON 5MG [Suspect]
     Indication: PAIN
     Dosage: UNK, UNK
     Route: 048
     Dates: end: 20061025
  2. AMLODIPINE [Concomitant]
     Indication: HYPERTENSION
  3. UNREADABLE [Concomitant]
     Indication: HYPERTENSION
  4. ASPIRIN [Concomitant]
     Indication: HYPERTENSION
  5. UNREADABLE [Concomitant]

REACTIONS (4)
  - ABDOMINAL PAIN [None]
  - DEATH [None]
  - INFLUENZA LIKE ILLNESS [None]
  - JOINT SWELLING [None]
